FAERS Safety Report 15675056 (Version 3)
Quarter: 2019Q1

REPORT INFORMATION
  Report Type: Spontaneous
  Country: US (occurrence: US)
  Receive Date: 20181130
  Receipt Date: 20190117
  Transmission Date: 20190417
  Serious: No
  Sender: FDA-Public Use
  Company Number: US-PFIZER INC-2018005109

PATIENT
  Age: 7 Decade
  Sex: Female
  Weight: 93 kg

DRUGS (4)
  1. TIKOSYN [Suspect]
     Active Substance: DOFETILIDE
     Indication: ATRIAL FIBRILLATION
     Dosage: UNK, 3X/DAY
     Route: 048
     Dates: end: 2014
  2. TIKOSYN [Suspect]
     Active Substance: DOFETILIDE
     Dosage: 250 MG, 2X/DAY
     Route: 048
  3. TIKOSYN [Suspect]
     Active Substance: DOFETILIDE
     Dosage: UNK
     Route: 048
  4. TIKOSYN [Suspect]
     Active Substance: DOFETILIDE
     Dosage: UNK
     Route: 048
     Dates: start: 2014, end: 2017

REACTIONS (4)
  - Intentional product misuse [Unknown]
  - Overdose [Unknown]
  - Dyspnoea [Unknown]
  - Product use issue [Unknown]
